FAERS Safety Report 6604560-1 (Version None)
Quarter: 2010Q1

REPORT INFORMATION
  Report Type: 
  Country: None (occurrence: None)
  Receive Date: 20100226
  Receipt Date: 20091124
  Transmission Date: 20100710
  Serious: No
  Sender: FDA-Public Use
  Company Number: A0826660A

PATIENT
  Age: 29 Year
  Sex: Male

DRUGS (4)
  1. LAMOTRIGINE [Suspect]
     Indication: BIPOLAR DISORDER
     Dosage: 100MG PER DAY
     Route: 048
     Dates: start: 20091005
  2. ALBUTEROL SULATE [Concomitant]
  3. RITALIN [Concomitant]
  4. KLONOPIN [Concomitant]

REACTIONS (1)
  - RASH ERYTHEMATOUS [None]
